FAERS Safety Report 7901007-X (Version None)
Quarter: 2011Q4

REPORT INFORMATION
  Report Type: 
  Country: None (occurrence: None)
  Receive Date: 20111108
  Receipt Date: 20111103
  Transmission Date: 20120403
  Serious: Yes (Life-Threatening, Hospitalization)
  Sender: FDA-Public Use
  Company Number: CH-PFIZER INC-2011268833

PATIENT
  Age: 34 Year
  Sex: Female

DRUGS (5)
  1. DALMADORM [Concomitant]
     Dosage: 30 MG DAILY
     Dates: start: 20110401
  2. EFFEXOR [Interacting]
     Dosage: 150 MG DAILY
     Dates: start: 20110401
  3. TYSABRI [Concomitant]
     Dosage: 300 MG, MONTHLY
     Dates: start: 20090101
  4. CLONAZEPAM [Suspect]
     Dosage: 4 MG, SINGLE
     Route: 048
     Dates: start: 20110913
  5. TRAZODONE HCL [Interacting]
     Dosage: 100 MG DAILY
     Dates: start: 20110101

REACTIONS (4)
  - SUICIDE ATTEMPT [None]
  - DRUG INTERACTION [None]
  - CARDIO-RESPIRATORY ARREST [None]
  - ASPIRATION BRONCHIAL [None]
